FAERS Safety Report 17553449 (Version 1)
Quarter: 2020Q1

REPORT INFORMATION
  Report Type: Spontaneous
  Country: NL (occurrence: NL)
  Receive Date: 20200318
  Receipt Date: 20200318
  Transmission Date: 20200409
  Serious: Yes (Other)
  Sender: FDA-Public Use
  Company Number: NL-SUN PHARMACEUTICAL INDUSTRIES LTD-2020RR-240704

PATIENT
  Sex: Male

DRUGS (2)
  1. EZETIMIBE/SIMVASTATINE SUN 10 MG/40 MG TABLETTEN [Suspect]
     Active Substance: EZETIMIBE\SIMVASTATIN
     Indication: HYPERCHOLESTEROLAEMIA
     Dosage: 10/40, 1 X DAAGS, 1
     Route: 065
     Dates: start: 20200122, end: 20200209
  2. IRBESARTAN/HCTIRBESARTAN/HYDROCHLOORTHIAZIDE TABLET 300/12,5MG [Concomitant]
     Active Substance: HYDROCHLOROTHIAZIDE\IRBESARTAN
     Indication: PRODUCT USED FOR UNKNOWN INDICATION
     Dosage: 300/12.5
     Route: 065

REACTIONS (4)
  - Dizziness [Recovered/Resolved]
  - Myalgia [Recovered/Resolved]
  - Syncope [Recovered/Resolved]
  - Therapeutic response unexpected [Unknown]
